FAERS Safety Report 23978911 (Version 1)
Quarter: 2024Q2

REPORT INFORMATION
  Report Type: Report from Study
  Country: US (occurrence: US)
  Receive Date: 20240615
  Receipt Date: 20240615
  Transmission Date: 20240716
  Serious: Yes (Other)
  Sender: FDA-Public Use
  Company Number: US-ABBVIE-5754641

PATIENT
  Age: 72 Year
  Sex: Female

DRUGS (1)
  1. HUMIRA [Suspect]
     Active Substance: ADALIMUMAB
     Indication: Uveitis
     Dosage: FORM STRENGTH: 40 MILLIGRAM?LAST ADMIN DATE- 2024?CITRATE FREE
     Route: 058
     Dates: start: 20240112

REACTIONS (6)
  - Systemic lupus erythematosus [Recovering/Resolving]
  - Urinary tract infection [Recovered/Resolved]
  - Urinary tract infection [Recovered/Resolved]
  - Eye infection [Recovered/Resolved]
  - Blood urine present [Unknown]
  - Pyrexia [Unknown]

NARRATIVE: CASE EVENT DATE: 20240501
